FAERS Safety Report 5202155-8 (Version None)
Quarter: 2007Q1

REPORT INFORMATION
  Report Type: 
  Country: None (occurrence: None)
  Receive Date: 20070109
  Receipt Date: 20070102
  Transmission Date: 20070707
  Serious: Yes (Hospitalization)
  Sender: FDA-Public Use
  Company Number: GB-ROCHE-470817

PATIENT
  Age: 69 Year
  Sex: Male

DRUGS (1)
  1. XENICAL [Suspect]
     Indication: OVERWEIGHT
     Route: 065

REACTIONS (3)
  - GASTRIC NEOPLASM [None]
  - PANCREATITIS [None]
  - RENAL NEOPLASM [None]
